FAERS Safety Report 7154223-1 (Version None)
Quarter: 2010Q4

REPORT INFORMATION
  Report Type: 
  Country: None (occurrence: None)
  Receive Date: 20101213
  Receipt Date: 20101208
  Transmission Date: 20110411
  Serious: Yes (Other)
  Sender: FDA-Public Use
  Company Number: US-PFIZER INC-HQWYE334422JUL04

PATIENT
  Sex: Female

DRUGS (7)
  1. PROVERA [Suspect]
     Indication: HORMONE REPLACEMENT THERAPY
     Dosage: UNK
     Dates: start: 19930101, end: 19970101
  2. PREMPRO [Suspect]
     Indication: HORMONE REPLACEMENT THERAPY
     Dosage: 0.625 MG/ 5MG, UNK
     Dates: start: 19970101, end: 19980101
  3. PREMARIN [Suspect]
     Indication: HORMONE REPLACEMENT THERAPY
     Dosage: 0.625 MG
     Dates: start: 19930101, end: 19980401
  4. MEDROXYPROGESTERONE ACETATE [Suspect]
     Indication: HORMONE REPLACEMENT THERAPY
     Dosage: 10 MG, UNK
     Dates: start: 19980322, end: 19980422
  5. CYCRIN [Suspect]
     Indication: HORMONE REPLACEMENT THERAPY
     Dosage: 10 MG, UNK
     Dates: start: 19980201, end: 19980401
  6. ACETYLSALICYLIC ACID [Concomitant]
     Dosage: UNK
     Dates: start: 20050101
  7. CARTIA XT [Concomitant]
     Dosage: UNK
     Dates: start: 20050101

REACTIONS (3)
  - BREAST CANCER METASTATIC [None]
  - OVARIAN CANCER [None]
  - THROMBOSIS [None]
